FAERS Safety Report 20511687 (Version 4)
Quarter: 2022Q4

REPORT INFORMATION
  Report Type: Report from Study
  Country: DE (occurrence: None)
  Receive Date: 20220224
  Receipt Date: 20221130
  Transmission Date: 20230112
  Serious: Yes (Hospitalization)
  Sender: FDA-Public Use
  Company Number: DE-Eisai Medical Research-EC-2021-106159

PATIENT
  Age: 57 Year
  Sex: Male
  Weight: 73 kg

DRUGS (16)
  1. LENVATINIB [Suspect]
     Active Substance: LENVATINIB
     Indication: Renal cell carcinoma
     Route: 048
     Dates: start: 20210922
  2. BELZUTIFAN [Suspect]
     Active Substance: BELZUTIFAN
     Indication: Renal cell carcinoma
     Route: 048
     Dates: start: 20201201, end: 20210917
  3. ALLOPURINOL [Concomitant]
     Active Substance: ALLOPURINOL
     Dates: start: 201001
  4. CHOLECALCIFEROL [Concomitant]
     Active Substance: CHOLECALCIFEROL
     Dates: start: 202003
  5. MAGNESIUM [Concomitant]
     Active Substance: MAGNESIUM
     Dates: start: 202003
  6. PANTOPRAZOLE [Concomitant]
     Active Substance: PANTOPRAZOLE
     Dates: start: 20201102
  7. CYANOCOBALAMIN\PYRIDOXINE HYDROCHLORIDE\RIBOFLAVIN\SODIUM PANTOTHENATE [Concomitant]
     Active Substance: CYANOCOBALAMIN\PYRIDOXINE HYDROCHLORIDE\RIBOFLAVIN\SODIUM PANTOTHENATE\THIAMINE HYDROCHLORIDE\VITAMI
     Dates: start: 202003
  8. FERRO-SANOL DUODENAL [Concomitant]
     Active Substance: FERROUS GLYCINE SULFATE
     Dates: start: 202003
  9. DIPYRONE [Concomitant]
     Active Substance: DIPYRONE
     Dates: start: 202003
  10. EVEROLIMUS [Concomitant]
     Active Substance: EVEROLIMUS
     Dates: start: 202003
  11. NITROLINGUAL [Concomitant]
     Active Substance: NITROGLYCERIN
     Dates: start: 202003
  12. HYDROMORPHONE HYDROCHLORIDE [Concomitant]
     Active Substance: HYDROMORPHONE HYDROCHLORIDE
     Dates: start: 202003
  13. TRYASOL [Concomitant]
     Dates: start: 202003
  14. MOVICOL [Concomitant]
     Active Substance: POLYETHYLENE GLYCOL 3350\POTASSIUM CHLORIDE\SODIUM BICARBONATE\SODIUM CHLORIDE
     Dates: start: 202003
  15. NALOXEGOL [Concomitant]
     Active Substance: NALOXEGOL
     Dates: start: 202003
  16. CANDESARTAN [Concomitant]
     Active Substance: CANDESARTAN
     Dates: start: 202003

REACTIONS (1)
  - Hypertension [Not Recovered/Not Resolved]

NARRATIVE: CASE EVENT DATE: 20211011
